FAERS Safety Report 8459092-5 (Version None)
Quarter: 2012Q2

REPORT INFORMATION
  Report Type: 
  Country: None (occurrence: None)
  Receive Date: 20120622
  Receipt Date: 20120622
  Transmission Date: 20120825
  Serious: Yes (Other)
  Sender: FDA-Public Use
  Company Number: FR-PFIZER INC-2011US-41715

PATIENT
  Age: 21 Year
  Sex: Male

DRUGS (2)
  1. SUMATRIPTAN [Concomitant]
     Dosage: UNK
  2. VERAPAMIL HCL [Suspect]
     Indication: CLUSTER HEADACHE
     Dosage: 960 MG, DAILY

REACTIONS (2)
  - ATRIOVENTRICULAR BLOCK SECOND DEGREE [None]
  - OFF LABEL USE [None]
